FAERS Safety Report 5085090-8 (Version None)
Quarter: 2006Q3

REPORT INFORMATION
  Report Type: 
  Country: None (occurrence: None)
  Receive Date: 20060817
  Receipt Date: 20060802
  Transmission Date: 20061208
  Serious: Yes (Other)
  Sender: FDA-Public Use
  Company Number: ABFLT-06-0375

PATIENT
  Age: 48 Year
  Sex: Female
  Weight: 53.5244 kg

DRUGS (9)
  1. ABRAXANE [Suspect]
     Indication: BREAST CANCER METASTATIC
     Dosage: 260 / 10 CYCLES, INTRAVENOUS DRIP
     Route: 041
     Dates: start: 20060118, end: 20060531
  2. AVASTIN [Suspect]
     Indication: BREAST CANCER METASTATIC
     Dosage: 275 MG /  10 CYCLES, INTRAVENOUS
     Route: 042
     Dates: start: 20060118, end: 20060531
  3. NEXIUM [Concomitant]
  4. RISPERDAL [Concomitant]
  5. BENADRYL [Concomitant]
  6. DECADRON [Concomitant]
  7. ZANTAC [Concomitant]
  8. ALOXI (ALOXIPRIN) [Concomitant]
  9. OXYCONTIN [Concomitant]

REACTIONS (24)
  - BLOOD CALCIUM DECREASED [None]
  - BLOOD CREATININE DECREASED [None]
  - BLOOD SODIUM DECREASED [None]
  - BLOOD UREA DECREASED [None]
  - CHOLANGITIS ACUTE [None]
  - CHOLELITHIASIS [None]
  - CHOLESTASIS [None]
  - CHRONIC OBSTRUCTIVE PULMONARY DISEASE [None]
  - HAEMATOCRIT DECREASED [None]
  - HAEMOGLOBIN DECREASED [None]
  - HEPATIC CYST [None]
  - HEPATIC FAILURE [None]
  - HEPATIC HAEMATOMA [None]
  - HEPATOMEGALY [None]
  - HYPOCHROMASIA [None]
  - JAUNDICE CHOLESTATIC [None]
  - LYMPHOCYTE PERCENTAGE DECREASED [None]
  - POLYCHROMIC RED BLOOD CELLS PRESENT [None]
  - PORTAL VEIN THROMBOSIS [None]
  - POST PROCEDURAL COMPLICATION [None]
  - RED BLOOD CELL COUNT DECREASED [None]
  - RED BLOOD CELL TARGET CELLS PRESENT [None]
  - RED CELL DISTRIBUTION WIDTH DECREASED [None]
  - WHITE BLOOD CELL COUNT DECREASED [None]
